FAERS Safety Report 8132795-8 (Version None)
Quarter: 2012Q1

REPORT INFORMATION
  Report Type: 
  Country: None (occurrence: None)
  Receive Date: 20120213
  Receipt Date: 20120125
  Transmission Date: 20120608
  Serious: Yes (Hospitalization, Other)
  Sender: FDA-Public Use
  Company Number: GB-MERCK-1202GBR00070

PATIENT
  Age: 61 Year
  Sex: Male

DRUGS (1)
  1. ZOCOR [Suspect]
     Route: 065

REACTIONS (6)
  - THROMBOTIC THROMBOCYTOPENIC PURPURA [None]
  - CONFUSIONAL STATE [None]
  - HEADACHE [None]
  - AGITATION [None]
  - THROMBOCYTOPENIA [None]
  - MICROANGIOPATHIC HAEMOLYTIC ANAEMIA [None]
